FAERS Safety Report 17657681 (Version 1)
Quarter: 2020Q2

REPORT INFORMATION
  Report Type: Spontaneous
  Country: US (occurrence: US)
  Receive Date: 20200411
  Receipt Date: 20200411
  Transmission Date: 20200713
  Serious: No
  Sender: FDA-Public Use
  Company Number: US-GLAXOSMITHKLINE-US2020062249

PATIENT

DRUGS (1)
  1. ALLI [Suspect]
     Active Substance: ORLISTAT
     Dosage: UNK

REACTIONS (1)
  - Adverse drug reaction [Unknown]
